FAERS Safety Report 17683569 (Version 1)
Quarter: 2020Q2

REPORT INFORMATION
  Report Type: Spontaneous
  Country: CA (occurrence: CA)
  Receive Date: 20200420
  Receipt Date: 20200420
  Transmission Date: 20200714
  Serious: Yes (Death)
  Sender: FDA-Public Use
  Company Number: CA-ROCHE-2583352

PATIENT
  Age: 50 Year
  Sex: Female
  Weight: 73 kg

DRUGS (6)
  1. AVASTIN [Suspect]
     Active Substance: BEVACIZUMAB
     Indication: GLIOBLASTOMA
     Route: 042
  2. AVASTIN [Suspect]
     Active Substance: BEVACIZUMAB
     Route: 042
  3. AVASTIN [Suspect]
     Active Substance: BEVACIZUMAB
     Indication: BRAIN NEOPLASM MALIGNANT
     Route: 042
  4. DILANTIN [Concomitant]
     Active Substance: PHENYTOIN
  5. TEMOZOLOMIDE. [Suspect]
     Active Substance: TEMOZOLOMIDE
     Indication: PRODUCT USED FOR UNKNOWN INDICATION
     Route: 065
  6. FENTANYL. [Concomitant]
     Active Substance: FENTANYL

REACTIONS (11)
  - Nausea [Fatal]
  - Tongue ulceration [Fatal]
  - Asthenia [Fatal]
  - Infrequent bowel movements [Fatal]
  - Fatigue [Fatal]
  - Blood count abnormal [Fatal]
  - Headache [Fatal]
  - Coagulation time prolonged [Fatal]
  - Seizure [Fatal]
  - Weight increased [Fatal]
  - Blood pressure increased [Fatal]
